FAERS Safety Report 21885907 (Version 2)
Quarter: 2023Q2

REPORT INFORMATION
  Report Type: Spontaneous
  Country: JP (occurrence: JP)
  Receive Date: 20230119
  Receipt Date: 20230421
  Transmission Date: 20230721
  Serious: Yes (Death, Hospitalization, Other)
  Sender: FDA-Public Use
  Company Number: JP-MSD-M2022-53537

PATIENT
  Age: 58 Year
  Sex: Male

DRUGS (3)
  1. KEYTRUDA [Suspect]
     Active Substance: PEMBROLIZUMAB
     Indication: Gingival cancer
     Dosage: 200 MILLIGRAM, Q3W
     Route: 041
     Dates: start: 20201029, end: 202102
  2. CETUXIMAB [Suspect]
     Active Substance: CETUXIMAB
     Indication: Gingival cancer
     Dosage: UNK
     Route: 041
     Dates: start: 202102, end: 202107
  3. PACLITAXEL [Suspect]
     Active Substance: PACLITAXEL
     Indication: Gingival cancer
     Dosage: UNK
     Route: 041
     Dates: start: 202102, end: 202107

REACTIONS (2)
  - Pulmonary toxicity [Fatal]
  - Malignant neoplasm progression [Unknown]

NARRATIVE: CASE EVENT DATE: 20210201
